FAERS Safety Report 25439046 (Version 1)
Quarter: 2025Q2

REPORT INFORMATION
  Report Type: Spontaneous
  Country: US (occurrence: US)
  Receive Date: 20250616
  Receipt Date: 20250616
  Transmission Date: 20250716
  Serious: Yes (Hospitalization)
  Sender: DOMPE FARMACEUTICI
  Company Number: US-FARMAPROD-202506-1857

PATIENT
  Sex: Male

DRUGS (1)
  1. OXERVATE [Suspect]
     Active Substance: CENEGERMIN-BKBJ
     Indication: Neurotrophic keratopathy
     Route: 047
     Dates: start: 20250514, end: 20250526

REACTIONS (5)
  - Fall [Unknown]
  - Lower limb fracture [Unknown]
  - Blood potassium increased [Unknown]
  - Urinary tract infection [Unknown]
  - Renal disorder [Unknown]
